FAERS Safety Report 19755145 (Version 1)
Quarter: 2021Q3

REPORT INFORMATION
  Report Type: Spontaneous
  Country: US (occurrence: US)
  Receive Date: 20210827
  Receipt Date: 20210827
  Transmission Date: 20211014
  Serious: No
  Sender: FDA-Public Use
  Company Number: None

PATIENT
  Age: 54 Year
  Sex: Female
  Weight: 85.5 kg

DRUGS (19)
  1. LIDOCAINE?PRILOCAINE 2.5?2.5% [Concomitant]
  2. PROCHLORPERAZINE 5MG [Concomitant]
  3. NITROSTAT [Concomitant]
     Active Substance: NITROGLYCERIN
  4. CYCLOPHOSPHAMIDE. [Suspect]
     Active Substance: CYCLOPHOSPHAMIDE
     Indication: CERVIX CARCINOMA
     Dosage: 100 MG DAILY MON?FRI ORAL
     Route: 048
     Dates: start: 20210722
  5. LISINOPRIL. [Concomitant]
     Active Substance: LISINOPRIL
  6. METOPROLOL TARTRATE 25MG [Concomitant]
     Active Substance: METOPROLOL TARTRATE
  7. FERROUS SULFATE 325MG [Concomitant]
     Active Substance: FERROUS SULFATE
  8. ONDANSETRON 8MG [Concomitant]
     Active Substance: ONDANSETRON
  9. PROCRIT 40,000UNIT/ML [Concomitant]
  10. ASPIRIN 81MG [Concomitant]
     Active Substance: ASPIRIN
  11. ISOSORBIDE MONONITRATE ER 30MG [Concomitant]
  12. RANOLAZINE ER 500MG [Concomitant]
  13. ATORVASTATIN 20MG [Concomitant]
     Active Substance: ATORVASTATIN
  14. FOLIC ACID 1MG [Concomitant]
     Active Substance: FOLIC ACID
  15. MAGNESIUM 500MG [Concomitant]
  16. DEXAMETHASONE 4MG [Concomitant]
     Active Substance: DEXAMETHASONE
  17. VITAMIN B12 500MCG [Concomitant]
  18. LEXAPRO [Concomitant]
     Active Substance: ESCITALOPRAM OXALATE
  19. PANTOPRAZOLE 40MG [Concomitant]
     Active Substance: PANTOPRAZOLE SODIUM

REACTIONS (1)
  - Abdominal discomfort [None]

NARRATIVE: CASE EVENT DATE: 20210821
